FAERS Safety Report 13943328 (Version 1)
Quarter: 2017Q3

REPORT INFORMATION
  Report Type: Report from Study
  Country: None (occurrence: US)
  Receive Date: 20170907
  Receipt Date: 20170907
  Transmission Date: 20171128
  Serious: Yes (Hospitalization, Other)
  Sender: FDA-Public Use
  Company Number: US-ABBVIE-17K-163-1969441-00

PATIENT
  Sex: Female
  Weight: 72.64 kg

DRUGS (3)
  1. ASPIRIN. [Concomitant]
     Active Substance: ASPIRIN
     Indication: ATRIAL FIBRILLATION
  2. HUMIRA [Suspect]
     Active Substance: ADALIMUMAB
     Indication: CROHN^S DISEASE
     Route: 058
  3. NADOLOL. [Concomitant]
     Active Substance: NADOLOL
     Indication: ATRIAL FIBRILLATION

REACTIONS (19)
  - Mobility decreased [Not Recovered/Not Resolved]
  - Nausea [Unknown]
  - Muscular weakness [Not Recovered/Not Resolved]
  - Rotator cuff syndrome [Unknown]
  - Gastrointestinal motility disorder [Unknown]
  - Vomiting [Unknown]
  - Joint dislocation [Unknown]
  - Dizziness [Unknown]
  - Gait disturbance [Unknown]
  - Fall [Recovered/Resolved]
  - Scoliosis [Unknown]
  - Spinal column stenosis [Not Recovered/Not Resolved]
  - Back disorder [Unknown]
  - Osteoarthritis [Unknown]
  - Knee operation [Unknown]
  - Rheumatoid arthritis [Unknown]
  - Diverticulitis [Unknown]
  - Decreased appetite [Unknown]
  - Dyspepsia [Unknown]

NARRATIVE: CASE EVENT DATE: 2015
